FAERS Safety Report 5487776-X (Version None)
Quarter: 2007Q3

REPORT INFORMATION
  Report Type: 
  Country: None (occurrence: None)
  Receive Date: 20070927
  Receipt Date: 20070726
  Transmission Date: 20080115
  Serious: Yes (Other)
  Sender: FDA-Public Use
  Company Number: A03200704881

PATIENT
  Age: 56 Year
  Sex: Male
  Weight: 112.0385 kg

DRUGS (4)
  1. AMBIEN CR [Suspect]
     Indication: INSOMNIA
     Dosage: 25 MG ONCE - ORAL
     Route: 048
     Dates: start: 20070722, end: 20070723
  2. AMBIEN CR [Suspect]
     Indication: INSOMNIA
     Dosage: 12.5 MG HS - ORAL
     Route: 048
  3. WARFARIN SODIUM [Concomitant]
  4. ESOMEPRAZOLE [Concomitant]

REACTIONS (4)
  - ACCIDENTAL OVERDOSE [None]
  - AMNESIA [None]
  - DELUSION [None]
  - PHYSICAL ABUSE [None]
